FAERS Safety Report 15584601 (Version 4)
Quarter: 2019Q3

REPORT INFORMATION
  Report Type: Spontaneous
  Country: US (occurrence: US)
  Receive Date: 20181102
  Receipt Date: 20190702
  Transmission Date: 20191004
  Serious: Yes (Other)
  Sender: FDA-Public Use
  Company Number: US-ASTRAZENECA-2018SF43261

PATIENT
  Age: 722 Month
  Sex: Female
  Weight: 73.5 kg

DRUGS (10)
  1. LANTUS [Concomitant]
     Active Substance: INSULIN GLARGINE
     Dosage: 45 UNITS SUB-Q IN THE MORNING AND SOMETIMES 45 UNITS SUB-Q IN THE EVENING
     Route: 058
     Dates: start: 2008
  2. NOVOLOG [Concomitant]
     Active Substance: INSULIN ASPART
     Indication: TYPE 2 DIABETES MELLITUS
     Dosage: 30 TO 35 UNITS TWICE EACH DAY AS REQUIRED
     Route: 058
     Dates: start: 2008
  3. ASPIRIN. [Concomitant]
     Active Substance: ASPIRIN
     Indication: CARDIAC DISORDER
     Dosage: 81 MG DAILY
     Route: 048
  4. CALCIUM [Concomitant]
     Active Substance: CALCIUM
  5. LEVOTHYROXINE. [Concomitant]
     Active Substance: LEVOTHYROXINE
     Indication: THYROID HORMONES DECREASED
     Dosage: 25 MG DAILY
     Route: 048
     Dates: start: 201811
  6. GLIPIZIDE. [Concomitant]
     Active Substance: GLIPIZIDE
     Indication: DIABETES MELLITUS
     Dosage: 10 MG TWICE EACH DAY
     Route: 048
     Dates: start: 2013
  7. VITAMIN D3 SUPPLEMENTS [Concomitant]
  8. BYDUREON BCISE [Suspect]
     Active Substance: EXENATIDE
     Indication: TYPE 2 DIABETES MELLITUS
     Route: 058
     Dates: start: 2018
  9. METFORMIN [Concomitant]
     Active Substance: METFORMIN HYDROCHLORIDE
     Indication: TYPE 2 DIABETES MELLITUS
     Dosage: METFORMIN ER 1000 UNITS TWICE EACH DAY BY MOUTH FOR DIABETES
  10. METFORMIN [Concomitant]
     Active Substance: METFORMIN HYDROCHLORIDE
     Indication: TYPE 2 DIABETES MELLITUS
     Route: 048
     Dates: start: 201807

REACTIONS (16)
  - Nasopharyngitis [Unknown]
  - Malignant melanoma [Unknown]
  - Injection site haemorrhage [Unknown]
  - Product physical issue [Unknown]
  - Glycosylated haemoglobin abnormal [Unknown]
  - Sinusitis [Unknown]
  - Blood glucose decreased [Unknown]
  - Nausea [Recovering/Resolving]
  - Circumstance or information capable of leading to medication error [Not Recovered/Not Resolved]
  - Product dose omission [Unknown]
  - Injection site nodule [Unknown]
  - Blood glucose increased [Unknown]
  - Injection site bruising [Unknown]
  - Dyspnoea [Unknown]
  - Hypoglycaemia [Unknown]
  - Asthenia [Unknown]

NARRATIVE: CASE EVENT DATE: 201804
